FAERS Safety Report 4383879-1 (Version None)
Quarter: 2004Q2

REPORT INFORMATION
  Report Type: 
  Country: None (occurrence: None)
  Receive Date: 20040623
  Receipt Date: 20040623
  Transmission Date: 20050107
  Serious: Yes (Life-Threatening, Hospitalization)
  Sender: FDA-Public Use
  Company Number: None

PATIENT
  Age: 80 Year
  Sex: Female
  Weight: 80 kg

DRUGS (3)
  1. VALSARTAN (DIOVAN HCT) [Suspect]
     Indication: HYPERTENSION
     Dosage: 80 MG PO QD 12.5 MG PO QD/ ABOUT 1 MONTH
     Route: 048
  2. KLOR-CON [Concomitant]
  3. CELEBREX [Concomitant]

REACTIONS (4)
  - ANGIONEUROTIC OEDEMA [None]
  - APHASIA [None]
  - DYSPNOEA [None]
  - SWOLLEN TONGUE [None]
